FAERS Safety Report 6746179-8 (Version None)
Quarter: 2010Q2

REPORT INFORMATION
  Report Type: 
  Country: None (occurrence: None)
  Receive Date: 20100528
  Receipt Date: 20091007
  Transmission Date: 20101027
  Serious: No
  Sender: FDA-Public Use
  Company Number: US-ASTRAZENECA-2009SE18618

PATIENT
  Sex: Male
  Weight: 72.6 kg

DRUGS (1)
  1. OMEPRAZOLE [Suspect]
     Indication: BARRETT'S OESOPHAGUS
     Route: 048
     Dates: start: 20090815, end: 20090909

REACTIONS (3)
  - ARTHRITIS [None]
  - FINGER DEFORMITY [None]
  - PAIN IN EXTREMITY [None]
